FAERS Safety Report 7767760-3 (Version None)
Quarter: 2011Q3

REPORT INFORMATION
  Report Type: 
  Country: None (occurrence: None)
  Receive Date: 20110922
  Receipt Date: 20100910
  Transmission Date: 20111222
  Serious: No
  Sender: FDA-Public Use
  Company Number: US-ASTRAZENECA-2010SE42560

PATIENT
  Age: 18 Year
  Sex: Male
  Weight: 99.8 kg

DRUGS (2)
  1. SEROQUEL XR [Suspect]
     Dosage: 300 MG DAILY FOR 3 NIGHTS
     Route: 048
     Dates: start: 20100901, end: 20100901
  2. SEROQUEL XR [Suspect]
     Route: 048

REACTIONS (2)
  - CHOKING [None]
  - COUGH [None]
